FAERS Safety Report 9590960 (Version 1)
Quarter: 2013Q4

REPORT INFORMATION
  Report Type: Spontaneous
  Country: US (occurrence: US)
  Receive Date: 20131003
  Receipt Date: 20131003
  Transmission Date: 20140711
  Serious: No
  Sender: FDA-Public Use
  Company Number: US-AMGEN-USASP2012079883

PATIENT
  Sex: Male
  Weight: 117.91 kg

DRUGS (8)
  1. ENBREL [Suspect]
     Indication: PSORIASIS
     Dosage: 50 MG/ML, ONCE WEEKLY
     Route: 058
  2. ADVAIR [Concomitant]
     Dosage: 100/50
  3. ALBUTEROL                          /00139501/ [Concomitant]
     Dosage: 0.083%
  4. MULTIVITAMINS, PLAIN [Concomitant]
     Dosage: UNK
  5. VITAMIN B COMPLEX [Concomitant]
     Dosage: UNK
  6. ALEVE [Concomitant]
     Dosage: UNK
  7. FISH OIL [Concomitant]
     Dosage: UNK
  8. TESTOSTERONE CYPIONATE [Concomitant]
     Dosage: 100 MG/ML, UNK

REACTIONS (4)
  - Arthralgia [Unknown]
  - Influenza like illness [Unknown]
  - Pain [Unknown]
  - Fatigue [Unknown]
